FAERS Safety Report 9770806 (Version 1)
Quarter: 2013Q4

REPORT INFORMATION
  Report Type: Spontaneous
  Country: GB (occurrence: GB)
  Receive Date: 20131218
  Receipt Date: 20131218
  Transmission Date: 20140711
  Serious: Yes (Disabling, Other)
  Sender: FDA-Public Use
  Company Number: GB-WATSON-2013-23027

PATIENT
  Age: 54 Year
  Sex: Male

DRUGS (2)
  1. SERTRALINE (UNKNOWN) [Suspect]
     Indication: DEPRESSION
     Dosage: 200 MG, UNKNOWN
     Route: 048
     Dates: start: 20131024
  2. SODIUM VALPROATE [Concomitant]
     Indication: PRODUCT USED FOR UNKNOWN INDICATION
     Dosage: UNK
     Route: 065

REACTIONS (5)
  - Extrapyramidal disorder [Not Recovered/Not Resolved]
  - Resting tremor [Not Recovered/Not Resolved]
  - Action tremor [Not Recovered/Not Resolved]
  - Hypertonia [Unknown]
  - Gait disturbance [Unknown]
